FAERS Safety Report 22095448 (Version 1)
Quarter: 2023Q1

REPORT INFORMATION
  Report Type: Spontaneous
  Country: CA (occurrence: CA)
  Receive Date: 20230314
  Receipt Date: 20230314
  Transmission Date: 20230418
  Serious: Yes (Other)
  Sender: FDA-Public Use
  Company Number: CA-PFIZER INC-2020366879

PATIENT
  Age: 37 Year
  Sex: Female

DRUGS (6)
  1. XELJANZ [Suspect]
     Active Substance: TOFACITINIB CITRATE
     Indication: Colitis ulcerative
     Dosage: 10 MG, 2X/DAY
     Route: 048
     Dates: start: 20200908, end: 2020
  2. XELJANZ [Suspect]
     Active Substance: TOFACITINIB CITRATE
     Indication: Arthritis
     Dosage: 10 MG, 2X/DAY
     Route: 048
     Dates: start: 20200908, end: 202011
  3. XELJANZ [Suspect]
     Active Substance: TOFACITINIB CITRATE
     Dosage: 5 MG, 2X/DAY
     Route: 048
     Dates: start: 2020
  4. XELJANZ [Suspect]
     Active Substance: TOFACITINIB CITRATE
     Dosage: 5 MG, 2X/DAY
     Route: 048
     Dates: start: 202011
  5. MESALAMINE [Concomitant]
     Active Substance: MESALAMINE
     Indication: Colitis ulcerative
     Dosage: UNK
  6. MESALAMINE [Concomitant]
     Active Substance: MESALAMINE
     Dosage: 1 DF, DOSAGE NOT AVAILABLE
     Route: 065

REACTIONS (18)
  - Condition aggravated [Not Recovered/Not Resolved]
  - Rectal haemorrhage [Recovered/Resolved]
  - Drug ineffective [Unknown]
  - Arthralgia [Unknown]
  - Pain in extremity [Unknown]
  - Migraine [Unknown]
  - Nausea [Unknown]
  - Vomiting [Unknown]
  - Back pain [Unknown]
  - Headache [Unknown]
  - Epistaxis [Not Recovered/Not Resolved]
  - Scab [Not Recovered/Not Resolved]
  - Decreased appetite [Not Recovered/Not Resolved]
  - Discomfort [Unknown]
  - Osteoarthritis [Unknown]
  - Product dispensing error [Not Recovered/Not Resolved]
  - Faecal calprotectin increased [Unknown]
  - Malaise [Recovered/Resolved]

NARRATIVE: CASE EVENT DATE: 20200101
